FAERS Safety Report 7272517-6 (Version None)
Quarter: 2011Q1

REPORT INFORMATION
  Report Type: 
  Country: None (occurrence: None)
  Receive Date: 20110203
  Receipt Date: 20110201
  Transmission Date: 20110831
  Serious: Yes (Other)
  Sender: FDA-Public Use
  Company Number: US-ROXANE LABORATORIES, INC.-2011-RO-00127RO

PATIENT
  Age: 66 Year
  Sex: Male

DRUGS (5)
  1. SIMVASTATIN [Suspect]
     Dosage: 20 MG
  2. CITALOPRAM HYDROBROMIDE [Suspect]
     Indication: ANXIETY
  3. ASPIRIN [Suspect]
     Dosage: 81 MG
  4. ALPRAZOLAM INTENSOL [ORAL SOLUTION (CONCENTRATE)] 1 MG/ML [Suspect]
     Dosage: 0.75 MG
  5. CITALOPRAM HYDROBROMIDE [Suspect]
     Indication: PANIC ATTACK
     Dosage: 20 MG

REACTIONS (2)
  - BRADYCARDIA [None]
  - SENSORY DISTURBANCE [None]
